FAERS Safety Report 18209980 (Version 3)
Quarter: 2020Q3

REPORT INFORMATION
  Report Type: Other
  Country: CA (occurrence: CA)
  Receive Date: 20200829
  Receipt Date: 20200925
  Transmission Date: 20201103
  Serious: Yes (Death, Hospitalization, Other)
  Sender: FDA-Public Use
  Company Number: CA-CELLTRION INC.-2020CA025967

PATIENT

DRUGS (22)
  1. CITALOPRAM [Concomitant]
     Active Substance: CITALOPRAM HYDROBROMIDE
  2. MESTINON [Concomitant]
     Active Substance: PYRIDOSTIGMINE BROMIDE
  3. ACETAMINOPHEN. [Concomitant]
     Active Substance: ACETAMINOPHEN
     Dosage: 650.0 MILLIGRAM
     Route: 048
  4. ASAPHEN [Concomitant]
     Active Substance: ASPIRIN
  5. BISOPROLOL [Concomitant]
     Active Substance: BISOPROLOL
  6. CALCIUM CARBONATE/VITAMIN D3 [Concomitant]
     Active Substance: CALCIUM CARBONATE\CHOLECALCIFEROL
  7. ESOMEPRAZOLE. [Concomitant]
     Active Substance: ESOMEPRAZOLE MAGNESIUM
  8. ATORVASTATIN CALCIUM. [Concomitant]
     Active Substance: ATORVASTATIN CALCIUM
  9. SYNTHROID [Concomitant]
     Active Substance: LEVOTHYROXINE SODIUM
  10. METHYLPREDNISOLONE SODIUM SUCCINATE. [Suspect]
     Active Substance: METHYLPREDNISOLONE SODIUM SUCCINATE
     Indication: PRODUCT USED FOR UNKNOWN INDICATION
     Dosage: 100.0 MILLIGRAM
     Route: 042
  11. RITUXIMAB (UNKNOWN) [Suspect]
     Active Substance: RITUXIMAB
     Indication: MYASTHENIA GRAVIS
     Dosage: 625.0 MILLIGRAM, 1 EVERY 1 WEEK
     Route: 042
  12. METHYLPREDNISOLONE SODIUM SUCCINATE. [Suspect]
     Active Substance: METHYLPREDNISOLONE SODIUM SUCCINATE
     Dosage: 100.0 MILLIGRAM
     Route: 042
  13. AZATHIOPRINE. [Concomitant]
     Active Substance: AZATHIOPRINE
  14. DIPHENHYDRAMINE HYDROCHLORIDE. [Suspect]
     Active Substance: DIPHENHYDRAMINE HYDROCHLORIDE
     Indication: PREMEDICATION
     Dosage: 50.0 MILLIGRAM
     Route: 048
  15. BENADRYL [Concomitant]
     Active Substance: DIPHENHYDRAMINE HYDROCHLORIDE
     Dosage: 50.0 MILLIGRAM
     Route: 048
  16. INSULIN HUMAN [Concomitant]
     Active Substance: INSULIN HUMAN
  17. LEVETIRACETAM. [Concomitant]
     Active Substance: LEVETIRACETAM
  18. FOLIC ACID. [Concomitant]
     Active Substance: FOLIC ACID
  19. ACETAMINOPHEN. [Suspect]
     Active Substance: ACETAMINOPHEN
     Indication: PREMEDICATION
     Dosage: 650.0 MILLIGRAM
     Route: 048
  20. LORAZEPAM. [Concomitant]
     Active Substance: LORAZEPAM
  21. PREDNISONE. [Concomitant]
     Active Substance: PREDNISONE
  22. RISEDRONATE SODIUM. [Concomitant]
     Active Substance: RISEDRONATE SODIUM

REACTIONS (29)
  - Myasthenia gravis [Fatal]
  - Blood pressure systolic increased [Fatal]
  - Cough [Fatal]
  - Dysphagia [Fatal]
  - Haemorrhage intracranial [Fatal]
  - Increased tendency to bruise [Fatal]
  - Oxygen saturation decreased [Fatal]
  - Wound necrosis [Fatal]
  - Contusion [Fatal]
  - Swelling [Fatal]
  - Chest pain [Fatal]
  - Scab [Fatal]
  - Haemorrhoids [Fatal]
  - Fatigue [Fatal]
  - Fall [Fatal]
  - Blood pressure fluctuation [Fatal]
  - Head injury [Fatal]
  - Impaired healing [Fatal]
  - Wound infection [Fatal]
  - Infusion related reaction [Fatal]
  - Somnolence [Fatal]
  - Erythema [Fatal]
  - Bone contusion [Fatal]
  - Heart rate decreased [Fatal]
  - Wound [Fatal]
  - Blood pressure increased [Fatal]
  - Dizziness [Fatal]
  - Vomiting [Fatal]
  - Off label use [Fatal]
